FAERS Safety Report 8610374-3 (Version None)
Quarter: 2012Q3

REPORT INFORMATION
  Report Type: 
  Country: None (occurrence: None)
  Receive Date: 20120822
  Receipt Date: 20120820
  Transmission Date: 20120928
  Serious: Yes (Other)
  Sender: FDA-Public Use
  Company Number: PHEH2011US07225

PATIENT
  Sex: Female
  Weight: 137 kg

DRUGS (6)
  1. FEMARA [Suspect]
     Indication: BREAST CANCER
     Dosage: 2.5 MG, DAILY
     Route: 048
  2. LOVASTATIN [Concomitant]
  3. LEXAPRO [Concomitant]
  4. METFORMIN [Concomitant]
  5. CANCER TREATMENT [Suspect]
     Indication: NEOPLASM MALIGNANT
  6. ACTONEL [Concomitant]

REACTIONS (2)
  - NERVE INJURY [None]
  - DEAFNESS [None]
